FAERS Safety Report 8577074-X (Version None)
Quarter: 2012Q3

REPORT INFORMATION
  Report Type: 
  Country: None (occurrence: None)
  Receive Date: 20120807
  Receipt Date: 20120725
  Transmission Date: 20120928
  Serious: No
  Sender: FDA-Public Use
  Company Number: US-ASTRAZENECA-2012SE52650

PATIENT
  Sex: Male

DRUGS (1)
  1. SYMBICORT [Suspect]
     Dosage: 160, UNKNOWN
     Route: 055

REACTIONS (3)
  - PALPITATIONS [None]
  - CHEST PAIN [None]
  - DYSPNOEA [None]
